FAERS Safety Report 9287790 (Version 1)
Quarter: 2013Q2

REPORT INFORMATION
  Report Type: Spontaneous
  Country: US (occurrence: US)
  Receive Date: 20130514
  Receipt Date: 20130514
  Transmission Date: 20140414
  Serious: No
  Sender: FDA-Public Use
  Company Number: US-PFIZER INC-2013100680

PATIENT
  Age: 23 Year
  Sex: Female

DRUGS (1)
  1. LYRICA [Suspect]
     Indication: PORPHYRIA NON-ACUTE
     Dosage: 75MG AS ONE CAPSULE IN MORNING THEN TWO CAPSULES IN AFTERNOON AND TWO CAPSULES AT NIGHT
     Route: 048
     Dates: end: 20130505

REACTIONS (5)
  - Paraesthesia [Not Recovered/Not Resolved]
  - Musculoskeletal discomfort [Not Recovered/Not Resolved]
  - Pain [Not Recovered/Not Resolved]
  - Sleep disorder [Not Recovered/Not Resolved]
  - Off label use [Recovered/Resolved]
